FAERS Safety Report 23138526 (Version 2)
Quarter: 2023Q4

REPORT INFORMATION
  Report Type: Spontaneous
  Country: SI (occurrence: SI)
  Receive Date: 20231102
  Receipt Date: 20231116
  Transmission Date: 20240110
  Serious: Yes (Hospitalization)
  Sender: FDA-Public Use
  Company Number: SI-TEVA-2023-SI-2940785

PATIENT
  Age: 8 Decade
  Sex: Female

DRUGS (28)
  1. ESCITALOPRAM [Suspect]
     Active Substance: ESCITALOPRAM OXALATE
     Indication: Major depression
     Dosage: 10 MILLIGRAM DAILY;
     Route: 065
     Dates: start: 2020
  2. RISPERIDONE [Interacting]
     Active Substance: RISPERIDONE
     Indication: Major depression
     Dosage: 1.5 MILLIGRAM DAILY; 0.5 MG THRICE DAILY
     Route: 065
     Dates: start: 2020
  3. RISPERIDONE [Interacting]
     Active Substance: RISPERIDONE
     Indication: Psychotic symptom
  4. OLANZAPINE [Suspect]
     Active Substance: OLANZAPINE
     Indication: Major depression
     Dosage: 2.5 MILLIGRAM DAILY;
     Route: 065
     Dates: start: 2021
  5. OLANZAPINE [Suspect]
     Active Substance: OLANZAPINE
     Indication: Psychotic symptom
     Dosage: 20 MILLIGRAM DAILY;
     Route: 065
  6. OLANZAPINE [Suspect]
     Active Substance: OLANZAPINE
     Dosage: 15 MILLIGRAM DAILY;
     Route: 065
  7. MIRTAZAPINE [Suspect]
     Active Substance: MIRTAZAPINE
     Indication: Major depression
     Dosage: 30 MILLIGRAM DAILY;
     Route: 065
     Dates: start: 2020
  8. MIRTAZAPINE [Suspect]
     Active Substance: MIRTAZAPINE
     Indication: Psychotic symptom
     Dosage: 15 MILLIGRAM DAILY;
     Route: 065
     Dates: start: 2021
  9. LORAZEPAM [Suspect]
     Active Substance: LORAZEPAM
     Indication: Major depression
     Dosage: .5 MILLIGRAM DAILY;
     Route: 065
     Dates: start: 2021
  10. LORAZEPAM [Suspect]
     Active Substance: LORAZEPAM
     Indication: Psychotic symptom
     Dosage: 1.5 MILLIGRAM DAILY;
     Route: 065
  11. LORAZEPAM [Suspect]
     Active Substance: LORAZEPAM
     Dosage: 3.25 MILLIGRAM DAILY;
     Route: 065
  12. SERTRALINE [Interacting]
     Active Substance: SERTRALINE HYDROCHLORIDE
     Indication: Major depression
     Dosage: 25 MILLIGRAM DAILY;
     Route: 065
     Dates: start: 2021
  13. SERTRALINE [Interacting]
     Active Substance: SERTRALINE HYDROCHLORIDE
     Indication: Psychotic symptom
     Dosage: DOSE INCREASED TO 50-100MG
     Route: 065
  14. SERTRALINE [Interacting]
     Active Substance: SERTRALINE HYDROCHLORIDE
     Dosage: 75 MILLIGRAM DAILY;
     Route: 065
  15. SERTRALINE [Interacting]
     Active Substance: SERTRALINE HYDROCHLORIDE
     Dosage: 50 MILLIGRAM DAILY;
     Route: 065
  16. ARIPIPRAZOLE [Interacting]
     Active Substance: ARIPIPRAZOLE
     Indication: Major depression
     Dosage: 10 MILLIGRAM DAILY;
     Route: 065
     Dates: start: 2021
  17. ARIPIPRAZOLE [Interacting]
     Active Substance: ARIPIPRAZOLE
     Indication: Psychotic symptom
  18. BREXPIPRAZOLE [Interacting]
     Active Substance: BREXPIPRAZOLE
     Indication: Major depression
     Dosage: 1 MILLIGRAM DAILY;
     Route: 065
     Dates: start: 2021
  19. BREXPIPRAZOLE [Interacting]
     Active Substance: BREXPIPRAZOLE
     Indication: Psychotic symptom
  20. VENLAFAXINE [Interacting]
     Active Substance: VENLAFAXINE HYDROCHLORIDE
     Indication: Major depression
     Dosage: 75 MILLIGRAM DAILY;
     Route: 065
     Dates: start: 2021
  21. VENLAFAXINE [Interacting]
     Active Substance: VENLAFAXINE HYDROCHLORIDE
     Indication: Psychotic symptom
  22. BIPERIDEN [Suspect]
     Active Substance: BIPERIDEN
     Indication: Major depression
     Dosage: 2 MILLIGRAM DAILY;
     Route: 065
     Dates: start: 2021
  23. BIPERIDEN [Suspect]
     Active Substance: BIPERIDEN
     Indication: Psychotic symptom
  24. AMISULPRIDE [Suspect]
     Active Substance: AMISULPRIDE
     Indication: Major depression
     Dosage: 400 MILLIGRAM DAILY;
     Route: 065
     Dates: start: 2021
  25. AMISULPRIDE [Suspect]
     Active Substance: AMISULPRIDE
     Indication: Psychotic symptom
  26. NITRAZEPAM [Suspect]
     Active Substance: NITRAZEPAM
     Indication: Major depression
     Dosage: 5 MILLIGRAM DAILY;
     Route: 065
     Dates: start: 2021
  27. NITRAZEPAM [Suspect]
     Active Substance: NITRAZEPAM
     Indication: Insomnia
  28. NITRAZEPAM [Suspect]
     Active Substance: NITRAZEPAM
     Indication: Psychotic symptom

REACTIONS (4)
  - Extrapyramidal disorder [Recovering/Resolving]
  - Akathisia [Recovering/Resolving]
  - Drug ineffective [Unknown]
  - Drug-genetic interaction [Unknown]
